FAERS Safety Report 18753977 (Version 4)
Quarter: 2021Q2

REPORT INFORMATION
  Report Type: Report from Study
  Country: None (occurrence: BR)
  Receive Date: 20210119
  Receipt Date: 20210418
  Transmission Date: 20210717
  Serious: No
  Sender: FDA-Public Use
  Company Number: BR-ABBVIE-20K-020-3692929-00

PATIENT
  Age: 77 Year
  Sex: Female
  Weight: 50 kg

DRUGS (7)
  1. DIPYRONE [Concomitant]
     Active Substance: DIPYRONE
     Indication: PAIN
     Dosage: EVERY NIGHT
     Route: 048
  2. CALCIUM [Concomitant]
     Active Substance: CALCIUM
     Indication: PRODUCT USED FOR UNKNOWN INDICATION
  3. DIPYRONE [Concomitant]
     Active Substance: DIPYRONE
     Dosage: HALF A TABLET EVERY OTHER DAY
  4. ABATACEPT [Concomitant]
     Active Substance: ABATACEPT
     Indication: PRODUCT USED FOR UNKNOWN INDICATION
  5. UPADACITINIB [Suspect]
     Active Substance: UPADACITINIB
     Indication: RHEUMATOID ARTHRITIS
     Route: 048
     Dates: start: 20201026
  6. DORFLEX [Concomitant]
     Active Substance: CAFFEINE\DIPYRONE\ORPHENADRINE
     Indication: PAIN
     Dosage: EVERY NIGHT
     Route: 048
  7. DIPYRONE [Concomitant]
     Active Substance: DIPYRONE
     Dosage: 2.5 TABLETS EVERY DAY

REACTIONS (11)
  - Pain [Not Recovered/Not Resolved]
  - Pain in extremity [Not Recovered/Not Resolved]
  - Loss of personal independence in daily activities [Not Recovered/Not Resolved]
  - Skin exfoliation [Not Recovered/Not Resolved]
  - Arthralgia [Recovered/Resolved]
  - Pain in extremity [Recovering/Resolving]
  - Arthralgia [Not Recovered/Not Resolved]
  - Anaemia [Not Recovered/Not Resolved]
  - Arthralgia [Not Recovered/Not Resolved]
  - Spinal pain [Not Recovered/Not Resolved]
  - Therapeutic product effect decreased [Not Recovered/Not Resolved]

NARRATIVE: CASE EVENT DATE: 20201110
